FAERS Safety Report 15673248 (Version 1)
Quarter: 2018Q4

REPORT INFORMATION
  Report Type: Spontaneous
  Country: FR (occurrence: FR)
  Receive Date: 20181129
  Receipt Date: 20181129
  Transmission Date: 20190205
  Serious: Yes (Hospitalization)
  Sender: FDA-Public Use
  Company Number: FR-ENDO PHARMACEUTICALS INC-2018-043156

PATIENT

DRUGS (1)
  1. BACLOFEN TABLETS [Suspect]
     Active Substance: BACLOFEN
     Indication: ALCOHOL USE DISORDER
     Dosage: DOSE PROGRESSIVELY INCREASED AND RANGED FROM 40 MG PER DAY TO 520 MG PER DAY
     Route: 065

REACTIONS (2)
  - Encephalopathy [Unknown]
  - Drug titration error [Unknown]
